FAERS Safety Report 4288352-7 (Version None)
Quarter: 2004Q1

REPORT INFORMATION
  Report Type: 
  Country: None (occurrence: None)
  Receive Date: 20040205
  Receipt Date: 20040129
  Transmission Date: 20041129
  Serious: Yes (Life-Threatening, Other)
  Sender: FDA-Public Use
  Company Number: M2004.6963

PATIENT
  Age: 86 Year
  Sex: Male

DRUGS (2)
  1. CAPTOPRIL [Suspect]
     Indication: HYPERTENSION
     Dosage: 25 MG BD, ORAL
     Route: 048
  2. BUPIVACAINE 3.0 - 3.5 ML 0.5% [Concomitant]

REACTIONS (5)
  - ANAESTHETIC COMPLICATION [None]
  - ANAESTHETIC COMPLICATION CARDIAC [None]
  - BRADYCARDIA [None]
  - DEPRESSED LEVEL OF CONSCIOUSNESS [None]
  - HYPOTENSION [None]
